FAERS Safety Report 8409472 (Version 2)
Quarter: 2013Q2

REPORT INFORMATION
  Report Type: Spontaneous
  Country: US (occurrence: None)
  Receive Date: 20111227
  Receipt Date: 20120703
  Transmission Date: 20140414
  Serious: No
  Sender: FDA-Public Use
  Company Number: PHEH2011US06256

PATIENT
  Age: 67 Year
  Sex: Female

DRUGS (1)
  1. GILENYA [Suspect]
     Indication: MULTIPLE SCLEROSIS
     Route: 048
     Dates: start: 20110815

REACTIONS (6)
  - VOMITING [None]
  - CONCUSSION [None]
  - FALL [None]
  - OVERDOSE [None]
  - Balance disorder [None]
  - Dizziness [None]
